FAERS Safety Report 6706188-1 (Version None)
Quarter: 2010Q2

REPORT INFORMATION
  Report Type: 
  Country: None (occurrence: None)
  Receive Date: 20100428
  Receipt Date: 20100414
  Transmission Date: 20101027
  Serious: Yes (Other)
  Sender: FDA-Public Use
  Company Number: WAES 1004USA03336

PATIENT
  Age: 54 Year
  Sex: Male

DRUGS (6)
  1. PRINIVIL [Suspect]
     Dosage: 10 MG/DAILY/PO
     Route: 048
     Dates: start: 20090401
  2. TRAZODONE HCL UNK [Suspect]
     Dosage: 100 MG/DAILY/
     Dates: start: 20090401
  3. TOPROL-XL [Suspect]
     Dosage: 225 MG/DAILY/
     Dates: start: 20090401
  4. HYDROCHLOROTHIAZIDE [Suspect]
     Dosage: 25 MG/DAILY/PO
     Route: 048
     Dates: start: 20090401
  5. SORAFENIB [Concomitant]
  6. SUNITINIB MALATE [Concomitant]

REACTIONS (7)
  - ABDOMINAL DISCOMFORT [None]
  - CONTUSION [None]
  - DEHYDRATION [None]
  - DIARRHOEA [None]
  - LOSS OF CONSCIOUSNESS [None]
  - NAUSEA [None]
  - SYNCOPE [None]
